FAERS Safety Report 24331975 (Version 3)
Quarter: 2025Q3

REPORT INFORMATION
  Report Type: Spontaneous
  Country: EU (occurrence: EU)
  Receive Date: 20240918
  Receipt Date: 20250809
  Transmission Date: 20251021
  Serious: Yes (Other)
  Sender: ALEXION PHARMACEUTICALS
  Company Number: 2024A211346

PATIENT
  Sex: Female

DRUGS (1)
  1. LYNPARZA [Suspect]
     Active Substance: OLAPARIB
     Indication: Bile duct cancer

REACTIONS (4)
  - Aplastic anaemia [Unknown]
  - Off label use [Unknown]
  - Insurance issue [Unknown]
  - Drug intolerance [Unknown]
